FAERS Safety Report 8068490-3 (Version None)
Quarter: 2012Q1

REPORT INFORMATION
  Report Type: 
  Country: None (occurrence: None)
  Receive Date: 20120124
  Receipt Date: 20111101
  Transmission Date: 20120608
  Serious: No
  Sender: FDA-Public Use
  Company Number: US-AMGEN-USASP2011040133

PATIENT
  Age: 90 Year
  Sex: Female
  Weight: 39.5 kg

DRUGS (16)
  1. DYAZIDE [Concomitant]
     Dosage: UNK UNK, QD
  2. LANOXIN [Concomitant]
     Dosage: 1 MG, QD
  3. SULAR [Concomitant]
  4. PROLIA [Suspect]
     Indication: OSTEOPOROSIS POSTMENOPAUSAL
     Dosage: 60 MG, Q6MO
     Dates: start: 20110805
  5. PROPRANOLOL [Concomitant]
  6. ZOCOR [Concomitant]
  7. CALCIUM CARBONATE [Concomitant]
     Dosage: UNK UNK, BID
  8. DYAZIDE [Concomitant]
  9. ASPIRIN [Concomitant]
     Dosage: 1 MG, QD
  10. PROPRANOLOL [Concomitant]
     Dosage: UNK UNK, BID
  11. ZOCOR [Concomitant]
     Dosage: UNK UNK, QD
  12. LANOXIN [Concomitant]
  13. POTASSIUM CHLORIDE [Concomitant]
     Dosage: UNK UNK, QD
  14. POTASSIUM CHLORIDE [Concomitant]
  15. CATAPRES [Concomitant]
     Dosage: UNK UNK, QD
  16. SULAR [Concomitant]
     Dosage: UNK UNK, QD

REACTIONS (3)
  - OEDEMA PERIPHERAL [None]
  - CONSTIPATION [None]
  - PRURITUS [None]
